FAERS Safety Report 8009222-4 (Version None)
Quarter: 2011Q4

REPORT INFORMATION
  Report Type: 
  Country: None (occurrence: None)
  Receive Date: 20111227
  Receipt Date: 20111213
  Transmission Date: 20120403
  Serious: Yes (Hospitalization)
  Sender: FDA-Public Use
  Company Number: US-SANOFI-AVENTIS-2011SA083132

PATIENT
  Age: 48 Year
  Sex: Female
  Weight: 85 kg

DRUGS (7)
  1. DOCETAXEL [Suspect]
     Indication: OVARIAN EPITHELIAL CANCER
     Route: 065
     Dates: start: 20110729
  2. CARBOPLATIN [Suspect]
     Route: 065
     Dates: start: 20111027
  3. BEVACIZUMAB [Suspect]
     Route: 042
     Dates: start: 20111117
  4. CARBOPLATIN [Suspect]
     Indication: OVARIAN EPITHELIAL CANCER
     Route: 065
     Dates: start: 20110729
  5. BEVACIZUMAB [Suspect]
     Route: 042
     Dates: start: 20111027
  6. DOCETAXEL [Suspect]
     Route: 065
     Dates: start: 20111027
  7. BEVACIZUMAB [Suspect]
     Indication: OVARIAN EPITHELIAL CANCER
     Route: 042
     Dates: start: 20110729

REACTIONS (1)
  - WOUND DEHISCENCE [None]
